FAERS Safety Report 7335078-9 (Version None)
Quarter: 2011Q1

REPORT INFORMATION
  Report Type: 
  Country: None (occurrence: None)
  Receive Date: 20110307
  Receipt Date: 20110222
  Transmission Date: 20110831
  Serious: Yes (Death)
  Sender: FDA-Public Use
  Company Number: US-ELI_LILLY_AND_COMPANY-US201102006801

PATIENT
  Age: 10 Year
  Sex: Male

DRUGS (10)
  1. OMEPRAZOLE [Concomitant]
  2. ALPRAZOLAM [Concomitant]
  3. LORAZEPAM [Concomitant]
  4. QUETIAPINE [Concomitant]
  5. RISPERDONE [Concomitant]
  6. CLONAZEPAM [Concomitant]
  7. VALPROIC ACID [Concomitant]
  8. ATOMOXETINE HCL [Suspect]
  9. METHYLPHENIDATE [Concomitant]
  10. LORATADINE [Concomitant]

REACTIONS (1)
  - DEATH [None]
